FAERS Safety Report 9285523 (Version 1)
Quarter: 2013Q2

REPORT INFORMATION
  Report Type: Spontaneous
  Country: US (occurrence: US)
  Receive Date: 20130513
  Receipt Date: 20130513
  Transmission Date: 20140414
  Serious: No
  Sender: FDA-Public Use
  Company Number: US-PFIZER INC-2013143326

PATIENT
  Sex: Female

DRUGS (4)
  1. LEVOXYL [Suspect]
     Dosage: 112 UG, UNK
  2. LEVOXYL [Suspect]
     Dosage: 100 UG, UNK
  3. LEVOXYL [Suspect]
     Dosage: 112 UG, UNK
  4. LEVOTHROID [Suspect]
     Dosage: UNK

REACTIONS (3)
  - Blood thyroid stimulating hormone increased [Unknown]
  - Drug hypersensitivity [Unknown]
  - Rash [Unknown]
